FAERS Safety Report 16162666 (Version 2)
Quarter: 2019Q2

REPORT INFORMATION
  Report Type: Report from Study
  Country: JP (occurrence: JP)
  Receive Date: 20190405
  Receipt Date: 20190419
  Transmission Date: 20190711
  Serious: Yes (Hospitalization, Other)
  Sender: FDA-Public Use
  Company Number: JP-TEVA-2019-JP-1035226

PATIENT
  Age: 42 Year
  Sex: Female

DRUGS (1)
  1. GLATIRAMER ACETATE. [Suspect]
     Active Substance: GLATIRAMER ACETATE
     Indication: MULTIPLE SCLEROSIS
     Dosage: 20 MILLIGRAM/MILLILITERS DAILY;
     Route: 058
     Dates: start: 20190313, end: 20190318

REACTIONS (9)
  - Urinary tract infection [Unknown]
  - Physical deconditioning [Unknown]
  - Lymphocyte count decreased [Recovering/Resolving]
  - Pyrexia [Recovered/Resolved]
  - Back pain [Unknown]
  - Malaise [Unknown]
  - Pyelonephritis [Unknown]
  - Procalcitonin increased [Unknown]
  - Chills [Unknown]

NARRATIVE: CASE EVENT DATE: 20190319
